FAERS Safety Report 8504338-8 (Version None)
Quarter: 2012Q3

REPORT INFORMATION
  Report Type: 
  Country: None (occurrence: None)
  Receive Date: 20120711
  Receipt Date: 20120706
  Transmission Date: 20120928
  Serious: Yes (Hospitalization)
  Sender: FDA-Public Use
  Company Number: PHHY2012GB058380

PATIENT
  Age: 40 Year
  Sex: Male
  Weight: 85 kg

DRUGS (5)
  1. PROPRANOLOL [Concomitant]
     Dates: start: 20120229, end: 20120419
  2. MIRTAZAPINE [Suspect]
     Dates: start: 20120418
  3. SERTRALINE HYDROCHLORIDE [Concomitant]
     Dosage: UNK
     Dates: start: 20120307, end: 20120404
  4. IBUPROFEN [Concomitant]
     Dates: start: 20120229, end: 20120530
  5. IBUPROFEN [Concomitant]
     Dates: start: 20120612, end: 20120616

REACTIONS (3)
  - BRAIN OEDEMA [None]
  - CONVULSION [None]
  - HYPONATRAEMIA [None]
